FAERS Safety Report 8799511 (Version 1)
Quarter: 2012Q4

REPORT INFORMATION
  Report Type: 
  Country: US (occurrence: US)
  Receive Date: 20120919
  Receipt Date: 20120919
  Transmission Date: 20130627
  Serious: No
  Sender: FDA-Public Use
  Company Number: US-PFIZER INC-2012227204

PATIENT
  Age: 26 Year
  Sex: Female
  Weight: 150 kg

DRUGS (4)
  1. ZIPRASIDONE HCL [Suspect]
     Indication: BIPOLAR DISORDER
     Dosage: 60 mg, 2x/day
     Dates: start: 201209
  2. LAMICTAL [Concomitant]
     Dosage: 200 mg, daily
  3. ABILIFY [Concomitant]
     Dosage: 15 mg, daily
  4. LISINOPRIL [Concomitant]
     Indication: HYPERTENSION
     Dosage: UNK

REACTIONS (6)
  - Heart rate decreased [Not Recovered/Not Resolved]
  - Hypopnoea [Not Recovered/Not Resolved]
  - Hypoaesthesia [Not Recovered/Not Resolved]
  - Feeling abnormal [Not Recovered/Not Resolved]
  - Swelling [Not Recovered/Not Resolved]
  - Fatigue [Not Recovered/Not Resolved]
